FAERS Safety Report 7668740-9 (Version None)
Quarter: 2011Q3

REPORT INFORMATION
  Report Type: 
  Country: None (occurrence: None)
  Receive Date: 20110803
  Receipt Date: 20110621
  Transmission Date: 20111222
  Serious: Yes (Life-Threatening, Hospitalization, Other)
  Sender: FDA-Public Use
  Company Number: 2011MA008096

PATIENT
  Age: 51 Year
  Sex: Male

DRUGS (3)
  1. ZOPICLONE (ZOPICLONE) [Suspect]
     Indication: PRODUCT USED FOR UNKNOWN INDICATION
  2. CITALOPRAM HYDROBROMIDE [Suspect]
     Indication: PRODUCT USED FOR UNKNOWN INDICATION
     Dosage: 60 MG, QD, PO
     Route: 048
  3. CLOZARIL [Suspect]
     Indication: SCHIZOPHRENIA
     Dosage: 400 MG, QD, PO
     Route: 048
     Dates: start: 20100410

REACTIONS (3)
  - HALLUCINATION, AUDITORY [None]
  - MULTIPLE DRUG OVERDOSE [None]
  - OVERDOSE [None]
